FAERS Safety Report 23014414 (Version 1)
Quarter: 2023Q4

REPORT INFORMATION
  Report Type: Report from Study
  Country: CN (occurrence: CN)
  Receive Date: 20231002
  Receipt Date: 20231002
  Transmission Date: 20240109
  Serious: Yes (Life-Threatening, Other)
  Sender: FDA-Public Use
  Company Number: CN-SA-2023SA294021

PATIENT

DRUGS (3)
  1. OXALIPLATIN [Suspect]
     Active Substance: OXALIPLATIN
     Indication: Colorectal cancer metastatic
     Dosage: 130 MG/M2, Q3W, [}2 H] ON DAY 1 (AS INITIAL THERAPY ON A 21-DAY CYCLE)
     Route: 042
  2. CATEQUENTINIB [Suspect]
     Active Substance: CATEQUENTINIB
     Indication: Colorectal cancer metastatic
     Dosage: 10 MG, QD, ON DAYS 1 TO 14 (AS INITIAL THERAPY ON A 21-DAY CYCLE)
     Route: 048
  3. CAPECITABINE [Suspect]
     Active Substance: CAPECITABINE
     Indication: Colorectal cancer metastatic
     Dosage: 1000 MG/M2, BID, ON DAYS 1 TO 14 (AS INITIAL THERAPY ON A 21-DAY CYCLE)
     Route: 048

REACTIONS (2)
  - Cardiac failure [Unknown]
  - Respiratory failure [Unknown]
